FAERS Safety Report 13756003 (Version 2)
Quarter: 2019Q3

REPORT INFORMATION
  Report Type: Spontaneous
  Country: DE (occurrence: DE)
  Receive Date: 20170714
  Receipt Date: 20190916
  Transmission Date: 20191004
  Serious: Yes (Other)
  Sender: FDA-Public Use
  Company Number: DE-SUN PHARMACEUTICAL INDUSTRIES LTD-2017RR-145269

PATIENT
  Sex: Female
  Weight: 87 kg

DRUGS (10)
  1. FOLIO FORTE [Concomitant]
     Active Substance: FOLIC ACID\VITAMINS
     Indication: PROPHYLAXIS OF NEURAL TUBE DEFECT
     Dosage: .8 MILLIGRAM DAILY;
     Route: 048
     Dates: start: 20160507, end: 20170204
  2. GRIPPEIMPFSTOFF [Concomitant]
     Active Substance: INFLUENZA VIRUS VACCINE
     Indication: IMMUNISATION
     Dosage: 23. GESTATIONAL WEEK
     Route: 030
  3. LANTUS [Concomitant]
     Active Substance: INSULIN GLARGINE
     Indication: GESTATIONAL DIABETES
     Dosage: 34 IU (INTERNATIONAL UNIT) DAILY;
     Route: 058
     Dates: start: 20161206, end: 20170204
  4. HUMALOG [Concomitant]
     Active Substance: INSULIN LISPRO
     Indication: GESTATIONAL DIABETES
     Dosage: 24 IU (INTERNATIONAL UNIT) DAILY; ()
     Route: 058
     Dates: start: 20161123, end: 20170204
  5. HUMALOG MIX50/50 [Concomitant]
     Active Substance: INSULIN LISPRO
     Indication: GESTATIONAL DIABETES
     Dosage: 28 IU (INTERNATIONAL UNIT) DAILY;
     Route: 058
     Dates: start: 20161201, end: 20170204
  6. OLANZAPINE. [Suspect]
     Active Substance: OLANZAPINE
     Indication: ANXIETY DISORDER
     Dosage: 5 MILLIGRAM DAILY;
     Route: 048
     Dates: start: 20160507, end: 20170204
  7. VENLAFAXINE [Suspect]
     Active Substance: VENLAFAXINE HYDROCHLORIDE
     Indication: DEPRESSION
     Dosage: 75 MILLIGRAM DAILY;
     Route: 048
     Dates: start: 20160507, end: 20170204
  8. GRIPPEIMPFSTOFF [Concomitant]
     Active Substance: INFLUENZA VIRUS VACCINE
     Indication: IMMUNISATION
     Dosage: ()
     Route: 030
  9. L-THYROX 75 [Concomitant]
     Indication: HYPOTHYROIDISM
     Dosage: 75 MICROG, QD; 27.3-39. GESTATIONAL WEEK
     Route: 048
  10. L-THYROX 75 [Concomitant]
     Dosage: 75 MICROGRAM DAILY;
     Route: 048

REACTIONS (3)
  - Gestational diabetes [Recovered/Resolved]
  - Exposure during pregnancy [Unknown]
  - Maternal exposure during pregnancy [Unknown]
